FAERS Safety Report 23539173 (Version 1)
Quarter: 2024Q1

REPORT INFORMATION
  Report Type: Report from Study
  Country: CA (occurrence: CA)
  Receive Date: 20240219
  Receipt Date: 20240219
  Transmission Date: 20240410
  Serious: Yes (Other)
  Sender: FDA-Public Use
  Company Number: CA-BAYER-2024A023227

PATIENT
  Age: 44 Year
  Sex: Male

DRUGS (1)
  1. NUBEQA [Suspect]
     Active Substance: DAROLUTAMIDE
     Indication: Hormone-refractory prostate cancer
     Dosage: 600 MG, BID
     Dates: start: 20240205

REACTIONS (4)
  - Vomiting [Unknown]
  - Dizziness [Unknown]
  - Hypersomnia [Unknown]
  - Eating disorder [Unknown]

NARRATIVE: CASE EVENT DATE: 20240205
